FAERS Safety Report 7879948-1 (Version None)
Quarter: 2011Q4

REPORT INFORMATION
  Report Type: 
  Country: None (occurrence: None)
  Receive Date: 20111101
  Receipt Date: 20111025
  Transmission Date: 20120403
  Serious: Yes (Death)
  Sender: FDA-Public Use
  Company Number: NL-ROCHE-1007059

PATIENT
  Sex: Male
  Weight: 72 kg

DRUGS (3)
  1. XELODA [Suspect]
     Indication: RECTAL CANCER
     Route: 048
     Dates: start: 20110630
  2. METOCLOPRAMIDE [Concomitant]
     Route: 048
     Dates: start: 20110629
  3. XELODA [Suspect]

REACTIONS (1)
  - DIARRHOEA [None]
